FAERS Safety Report 15643221 (Version 1)
Quarter: 2018Q4

REPORT INFORMATION
  Report Type: Spontaneous
  Country: US (occurrence: US)
  Receive Date: 20181115
  Receipt Date: 20181115
  Transmission Date: 20190205
  Serious: Yes (Hospitalization)
  Sender: FDA-Public Use
  Company Number: None

PATIENT
  Age: 47 Year
  Sex: Female
  Weight: 103.8 kg

DRUGS (2)
  1. DAPTOMYCIN 500 FRESNIUS [Suspect]
     Active Substance: DAPTOMYCIN
     Indication: BURSITIS INFECTIVE
     Dosage: ?          OTHER FREQUENCY:Q24H;?
     Route: 042
     Dates: start: 20181105, end: 20181112
  2. DAPTOMYCIN 500 FRESNIUS [Suspect]
     Active Substance: DAPTOMYCIN
     Indication: BURSITIS
     Dosage: ?          OTHER FREQUENCY:Q24H;?
     Route: 042
     Dates: start: 20181105, end: 20181112

REACTIONS (2)
  - Myalgia [None]
  - Rhabdomyolysis [None]

NARRATIVE: CASE EVENT DATE: 20181113
